FAERS Safety Report 9235774 (Version 2)
Quarter: 2013Q2

REPORT INFORMATION
  Report Type: Report from Study
  Country: AU (occurrence: AU)
  Receive Date: 20130417
  Receipt Date: 20130423
  Transmission Date: 20140414
  Serious: Yes (Other)
  Sender: FDA-Public Use
  Company Number: PHHY2013AU035655

PATIENT
  Age: 47 Year
  Sex: Male
  Weight: 130 kg

DRUGS (5)
  1. CLOZARIL [Suspect]
     Dosage: UNK UKN, UNK
     Dates: start: 2003
  2. CLOZARIL [Suspect]
     Dosage: 800 MG, NOCTE
  3. CLOZARIL [Suspect]
     Dosage: 650 MG, NOCTE
  4. METFORMIN [Concomitant]
     Dosage: 500 MG, MANE
  5. DIAZEPAM [Concomitant]
     Dosage: 5 MG, PRN (REPORTEDLY TAKES 5-10MG MOST DAYS)

REACTIONS (10)
  - Left ventricular hypertrophy [Unknown]
  - Obesity [Unknown]
  - Bundle branch block right [Unknown]
  - Diabetes mellitus [Unknown]
  - Orthostatic hypotension [Unknown]
  - C-reactive protein increased [Unknown]
  - Sinus tachycardia [Unknown]
  - Antipsychotic drug level increased [Unknown]
  - White blood cell count increased [Unknown]
  - Neutrophil count increased [Unknown]
